FAERS Safety Report 6579138-9 (Version None)
Quarter: 2010Q1

REPORT INFORMATION
  Report Type: 
  Country: None (occurrence: None)
  Receive Date: 20100212
  Receipt Date: 20100202
  Transmission Date: 20100710
  Serious: Yes (Hospitalization)
  Sender: FDA-Public Use
  Company Number: US-JNJFOC-20100201781

PATIENT
  Sex: Male
  Weight: 29 kg

DRUGS (11)
  1. REMICADE [Suspect]
     Indication: COLITIS ULCERATIVE
     Route: 042
  2. REMICADE [Suspect]
     Route: 042
  3. 5-ASA [Concomitant]
     Route: 048
  4. 5-ASA [Concomitant]
     Route: 048
  5. PREDNISONE TAB [Concomitant]
     Route: 048
  6. PREDNISONE TAB [Concomitant]
     Route: 048
  7. PROTONIX [Concomitant]
  8. METRONIDAZOLE [Concomitant]
  9. ANTIBIOTIC [Concomitant]
  10. ANTIBIOTIC [Concomitant]
  11. BUDESONIDE [Concomitant]

REACTIONS (5)
  - COLITIS ULCERATIVE [None]
  - CONDITION AGGRAVATED [None]
  - EATING DISORDER [None]
  - ENTEROBACTER BACTERAEMIA [None]
  - FUNGAEMIA [None]
